FAERS Safety Report 12368952 (Version 4)
Quarter: 2016Q3

REPORT INFORMATION
  Report Type: Spontaneous
  Country: CU (occurrence: CU)
  Receive Date: 20160513
  Receipt Date: 20160812
  Transmission Date: 20161109
  Serious: Yes (Death)
  Sender: FDA-Public Use
  Company Number: CU-ROCHE-1757412

PATIENT
  Age: 47 Year
  Sex: Female

DRUGS (11)
  1. FLUOROURACIL. [Concomitant]
     Active Substance: FLUOROURACIL
     Route: 065
     Dates: start: 201203, end: 201208
  2. OXALIPLATIN. [Concomitant]
     Active Substance: OXALIPLATIN
     Route: 065
     Dates: start: 201203, end: 201208
  3. IRINOTECAN [Concomitant]
     Active Substance: IRINOTECAN
     Route: 065
     Dates: start: 201401, end: 201406
  4. CAPECITABINE. [Concomitant]
     Active Substance: CAPECITABINE
     Route: 065
     Dates: start: 20130222, end: 201401
  5. FOLINIC ACID [Concomitant]
     Active Substance: LEUCOVORIN
     Route: 065
     Dates: start: 201401, end: 201406
  6. OXALIPLATIN. [Concomitant]
     Active Substance: OXALIPLATIN
     Route: 065
     Dates: start: 201401, end: 201406
  7. AVASTIN [Suspect]
     Active Substance: BEVACIZUMAB
     Indication: COLORECTAL CANCER METASTATIC
     Dosage: 6 MONTHS TREATMENT
     Route: 065
     Dates: start: 20130222, end: 201401
  8. AVASTIN [Suspect]
     Active Substance: BEVACIZUMAB
     Route: 065
     Dates: start: 20140114
  9. FOLINIC ACID [Concomitant]
     Active Substance: LEUCOVORIN
     Route: 065
     Dates: start: 201203, end: 201208
  10. FLUOROURACIL. [Concomitant]
     Active Substance: FLUOROURACIL
     Route: 065
     Dates: start: 201401, end: 201406
  11. AVASTIN [Suspect]
     Active Substance: BEVACIZUMAB
     Route: 065
     Dates: start: 20140807

REACTIONS (8)
  - Respiratory failure [Fatal]
  - Carcinoembryonic antigen increased [Fatal]
  - Diarrhoea [Fatal]
  - Interstitial lung disease [Fatal]
  - Febrile neutropenia [Fatal]
  - Thrombocytopenia [Fatal]
  - Skin hyperpigmentation [Fatal]
  - Neuropathy peripheral [Fatal]

NARRATIVE: CASE EVENT DATE: 20150507
